FAERS Safety Report 8186858-1 (Version None)
Quarter: 2012Q1

REPORT INFORMATION
  Report Type: 
  Country: None (occurrence: None)
  Receive Date: 20120213
  Receipt Date: 20111103
  Transmission Date: 20120608
  Serious: No
  Sender: FDA-Public Use
  Company Number: 1000006344

PATIENT
  Age: 72 Year
  Sex: Female

DRUGS (4)
  1. SAVELLA [Suspect]
     Indication: DEPRESSION
     Dosage: 12.5MG (12.5 MG, 1 IN 1 D) ORAL,  25 MG (12.5 MG, 2 IN 1 D) 50 MG (25 MG, 2 IN 1 D) ORAL
     Route: 048
     Dates: start: 20090515, end: 20090515
  2. SAVELLA [Suspect]
     Indication: DEPRESSION
     Dosage: 12.5MG (12.5 MG, 1 IN 1 D) ORAL,  25 MG (12.5 MG, 2 IN 1 D) 50 MG (25 MG, 2 IN 1 D) ORAL
     Route: 048
     Dates: start: 20090518
  3. SAVELLA [Suspect]
     Indication: DEPRESSION
     Dosage: 12.5MG (12.5 MG, 1 IN 1 D) ORAL,  25 MG (12.5 MG, 2 IN 1 D) 50 MG (25 MG, 2 IN 1 D) ORAL
     Route: 048
     Dates: start: 20090516, end: 20090517
  4. DIOVAN HCT [Concomitant]

REACTIONS (2)
  - DECREASED APPETITE [None]
  - HYPOTENSION [None]
